FAERS Safety Report 9562453 (Version 10)
Quarter: 2014Q2

REPORT INFORMATION
  Report Type: Report from Study
  Country: CA (occurrence: CA)
  Receive Date: 20130927
  Receipt Date: 20140429
  Transmission Date: 20141212
  Serious: Yes (Hospitalization, Other)
  Sender: FDA-Public Use
  Company Number: CA-ABBVIE-13P-028-1151088-00

PATIENT
  Age: 58 Year
  Sex: Female

DRUGS (5)
  1. HUMIRA [Suspect]
     Indication: CROHN^S DISEASE
     Route: 058
     Dates: start: 20080714, end: 201309
  2. HUMIRA [Suspect]
     Route: 058
     Dates: start: 20131004, end: 20131123
  3. HUMIRA [Suspect]
     Route: 058
     Dates: start: 20140211
  4. PREDNISONE [Suspect]
     Indication: CROHN^S DISEASE
     Route: 048
     Dates: start: 20130927, end: 201310
  5. PREDNISONE [Suspect]
     Indication: CROHN^S DISEASE
     Dates: start: 201310

REACTIONS (14)
  - Abdominal distension [Recovered/Resolved]
  - Muscle spasms [Unknown]
  - Constipation [Recovered/Resolved]
  - Blood iron decreased [Unknown]
  - Haematochezia [Recovered/Resolved]
  - Feeling abnormal [Unknown]
  - Crohn^s disease [Not Recovered/Not Resolved]
  - Hernia [Not Recovered/Not Resolved]
  - Dyspepsia [Unknown]
  - Impaired healing [Not Recovered/Not Resolved]
  - Wound dehiscence [Recovering/Resolving]
  - Flatulence [Not Recovered/Not Resolved]
  - Gastric dilatation [Not Recovered/Not Resolved]
  - Arthritis [Recovering/Resolving]
